FAERS Safety Report 18048585 (Version 5)
Quarter: 2020Q4

REPORT INFORMATION
  Report Type: Report from Study
  Country: US (occurrence: US)
  Receive Date: 20200721
  Receipt Date: 20201204
  Transmission Date: 20210113
  Serious: Yes (Hospitalization, Other)
  Sender: FDA-Public Use
  Company Number: US-GLAXOSMITHKLINE-US2019TSO199125

PATIENT
  Age: 45 Year
  Sex: Female

DRUGS (7)
  1. NIRAPARIB [Suspect]
     Active Substance: NIRAPARIB
     Indication: BREAST CANCER FEMALE
     Dosage: 200 MG, QD
     Route: 048
     Dates: start: 20191210, end: 20191224
  2. NIRAPARIB [Suspect]
     Active Substance: NIRAPARIB
     Dosage: 100 MG, QD
     Route: 048
     Dates: start: 20200513
  3. NIRAPARIB [Suspect]
     Active Substance: NIRAPARIB
     Indication: CERVIX CARCINOMA
     Dosage: 300 MG, PM WITH OUT FOOD
     Route: 048
     Dates: start: 20191023, end: 20191114
  4. NIRAPARIB [Suspect]
     Active Substance: NIRAPARIB
     Dosage: 100 MG, Q PM W/O FOOD
     Route: 048
     Dates: start: 20200107
  5. NIRAPARIB [Suspect]
     Active Substance: NIRAPARIB
     Dosage: 100 MG, QD
  6. NIRAPARIB [Suspect]
     Active Substance: NIRAPARIB
     Dosage: 100 MG, QD
     Dates: start: 20201021
  7. NIRAPARIB [Suspect]
     Active Substance: NIRAPARIB
     Dosage: 100 MG, QD
     Route: 048

REACTIONS (17)
  - Dyspnoea [Unknown]
  - Off label use [Unknown]
  - Contusion [Unknown]
  - Joint swelling [Unknown]
  - Nausea [Recovered/Resolved]
  - Pain [Recovered/Resolved]
  - Emotional disorder [Unknown]
  - Loss of personal independence in daily activities [Unknown]
  - Product use in unapproved indication [Unknown]
  - Weight increased [Unknown]
  - Sepsis [Unknown]
  - Thrombocytopenia [Recovered/Resolved]
  - Lymphoma [Unknown]
  - Hypoaesthesia [Not Recovered/Not Resolved]
  - Injury [Unknown]
  - Laboratory test abnormal [Unknown]
  - Vulval disorder [Recovered/Resolved]

NARRATIVE: CASE EVENT DATE: 20191031
